FAERS Safety Report 5074068-6 (Version None)
Quarter: 2006Q3

REPORT INFORMATION
  Report Type: 
  Country: None (occurrence: None)
  Receive Date: 20060808
  Receipt Date: 20060331
  Transmission Date: 20061208
  Serious: No
  Sender: FDA-Public Use
  Company Number: US-AMGEN-KDL175184

PATIENT
  Sex: Male
  Weight: 77.2 kg

DRUGS (10)
  1. PROCRIT [Suspect]
     Indication: ANAEMIA OF MALIGNANT DISEASE
     Route: 058
     Dates: start: 20060329
  2. ALIMTA [Concomitant]
     Route: 042
     Dates: start: 20060322
  3. GLUCOTROL [Concomitant]
     Route: 048
  4. DEXAMETHASONE [Concomitant]
     Dates: start: 20060321
  5. K-DUR 10 [Concomitant]
     Dates: start: 20050101
  6. LASIX [Concomitant]
     Route: 048
     Dates: start: 20050101
  7. COREG [Concomitant]
     Dates: start: 20050101
  8. COMPAZINE [Concomitant]
     Dates: start: 20060301
  9. PRAVACHOL [Concomitant]
     Route: 048
  10. ASPIRIN [Concomitant]
     Route: 048

REACTIONS (13)
  - AGITATION [None]
  - ANGER [None]
  - ASTHENIA [None]
  - BALANCE DISORDER [None]
  - BLOOD GLUCOSE INCREASED [None]
  - CHILLS [None]
  - CONFUSIONAL STATE [None]
  - COUGH [None]
  - INSOMNIA [None]
  - MYDRIASIS [None]
  - NERVOUSNESS [None]
  - PSYCHOMOTOR HYPERACTIVITY [None]
  - RHINORRHOEA [None]
